FAERS Safety Report 7289281-7 (Version None)
Quarter: 2011Q1

REPORT INFORMATION
  Report Type: 
  Country: None (occurrence: None)
  Receive Date: 20110211
  Receipt Date: 20110131
  Transmission Date: 20110831
  Serious: Yes (Hospitalization, Other)
  Sender: FDA-Public Use
  Company Number: JP-PFIZER INC-2011015071

PATIENT
  Age: 15 Year
  Sex: Female

DRUGS (8)
  1. ALFAROL [Concomitant]
     Dosage: UNK
     Dates: start: 20091124
  2. NEUROTROPIN [Concomitant]
     Dosage: UNK
     Dates: start: 20091109
  3. PROGRAF [Suspect]
     Indication: GASTROENTERITIS
     Dosage: 2 MG, 2X/DAY
     Route: 048
     Dates: start: 20081224, end: 20101215
  4. PREDNISOLONE [Concomitant]
     Dosage: UNK
     Dates: start: 20080616
  5. GLAKAY [Concomitant]
     Dosage: UNK
     Dates: start: 20090106
  6. TAKEPRON [Concomitant]
     Dosage: UNK
     Dates: start: 20080331
  7. SELBEX [Concomitant]
     Dosage: UNK
     Dates: start: 20080621
  8. CELECOXIB [Suspect]
     Indication: BACK PAIN
     Dosage: 100 MG, 1X/DAY
     Route: 048
     Dates: start: 20101203, end: 20101216

REACTIONS (3)
  - CONVULSION [None]
  - RENAL IMPAIRMENT [None]
  - GASTROENTERITIS NOROVIRUS [None]
